FAERS Safety Report 9952798 (Version 1)
Quarter: 2014Q1

REPORT INFORMATION
  Report Type: Spontaneous
  Country: US (occurrence: US)
  Receive Date: 20140304
  Receipt Date: 20140304
  Transmission Date: 20141002
  Serious: No
  Sender: FDA-Public Use
  Company Number: US-AMGEN-USASP2014000122

PATIENT
  Age: 83 Year
  Sex: Female
  Weight: 69.84 kg

DRUGS (7)
  1. ENBREL [Suspect]
     Indication: PRODUCT USED FOR UNKNOWN INDICATION
     Dosage: 50 MG, QWK
     Route: 058
  2. GABAPENTIN [Concomitant]
     Dosage: 100 MG, UNK
  3. QUINAPRIL [Concomitant]
     Dosage: 20 MG, UNK
  4. SIMVASTATIN [Concomitant]
     Dosage: 40 MG, UNK
  5. AGGRENOX [Concomitant]
     Dosage: 25-200 MG, UNK
  6. VITAMIN D                          /00107901/ [Concomitant]
     Dosage: 400 UNIT, UNK
  7. FISH OIL [Concomitant]
     Dosage: UNK

REACTIONS (2)
  - Condition aggravated [Unknown]
  - Pain in extremity [Unknown]
